FAERS Safety Report 13309650 (Version 2)
Quarter: 2017Q2

REPORT INFORMATION
  Report Type: Spontaneous
  Country: FR (occurrence: FR)
  Receive Date: 20170309
  Receipt Date: 20170411
  Transmission Date: 20170830
  Serious: Yes (Hospitalization)
  Sender: FDA-Public Use
  Company Number: FR-PFIZER INC-2017096077

PATIENT
  Age: 2 Year
  Sex: Female
  Weight: 13.8 kg

DRUGS (7)
  1. VINCRISTINE SULFATE. [Suspect]
     Active Substance: VINCRISTINE SULFATE
     Indication: RENAL NEOPLASM
     Dosage: 0.85 MG, SINGLE
     Route: 042
     Dates: start: 20170130, end: 20170130
  2. COSMEGEN [Suspect]
     Active Substance: DACTINOMYCIN
     Dosage: UNK
     Dates: start: 20170213
  3. ZOPHREN /00955301/ [Suspect]
     Active Substance: ONDANSETRON
     Indication: PROPHYLAXIS OF NAUSEA AND VOMITING
     Dosage: 4 MG, 2X/DAY EVERY 12 HOURS
     Route: 048
     Dates: start: 20170130, end: 20170211
  4. IMPORTAL [Suspect]
     Active Substance: LACTITOL
     Dosage: 5 G, 1X/DAY
     Route: 048
     Dates: start: 20170130
  5. ZOPHREN /00955301/ [Suspect]
     Active Substance: ONDANSETRON
     Dosage: UNK, AS NEEDED
     Route: 048
  6. COSMEGEN [Suspect]
     Active Substance: DACTINOMYCIN
     Indication: RENAL NEOPLASM
     Dosage: 620 UG, ACCORDING TO THE CYCLE
     Route: 042
     Dates: start: 20170130
  7. GLYCERIN SUPPOSITORIES [Concomitant]
     Indication: CONSTIPATION
     Dosage: UNK UNK, AS NEEDED IF NO STOOL DURING MORE THAN 2 DAYS
     Route: 054

REACTIONS (6)
  - Anuria [Recovered/Resolved]
  - Pain in jaw [Recovered/Resolved]
  - Pain in extremity [Recovered/Resolved]
  - Ileus paralytic [Recovered/Resolved]
  - Rash maculo-papular [Recovered/Resolved]
  - Neuralgia [Recovering/Resolving]

NARRATIVE: CASE EVENT DATE: 20170206
